FAERS Safety Report 8510156 (Version 2)
Quarter: 2012Q4

REPORT INFORMATION
  Report Type: 
  Country: US (occurrence: US)
  Receive Date: 20120413
  Receipt Date: 20120831
  Transmission Date: 20130627
  Serious: Yes (Hospitalization)
  Sender: FDA-Public Use
  Company Number: US-BAYER-2012-033658

PATIENT
  Age: 40 Year
  Sex: Female
  Weight: 72.56 kg

DRUGS (17)
  1. YAZ [Suspect]
     Indication: PREMENSTRUAL SYNDROME
     Dosage: UNK
     Dates: start: 20080113, end: 20090413
  2. YAZ [Suspect]
     Indication: MENSTRUAL CYCLE MANAGEMENT
  3. YAZ [Suspect]
     Indication: CONTRACEPTION
  4. YASMIN [Suspect]
     Indication: PREMENSTRUAL SYNDROME
     Dosage: UNK
     Dates: start: 200501, end: 20080112
  5. YASMIN [Suspect]
     Indication: MENSTRUAL CYCLE MANAGEMENT
  6. MULTIVITAMIN [Concomitant]
     Indication: SUPPLEMENTATION THERAPY
     Dosage: 1 daily
  7. LORCET [Concomitant]
  8. DIAZEPAM [Concomitant]
     Dosage: 5 mg, tablets
     Dates: start: 20090214
  9. TREXIMET [Concomitant]
     Indication: HEADACHE
     Dosage: UNK UNK, PRN
     Dates: start: 20090309
  10. IBUPROFEN [Concomitant]
     Indication: HEADACHE
     Dosage: UNK UNK, QD
     Dates: start: 200903, end: 200904
  11. MOTRIN [Concomitant]
     Indication: PAIN
     Dosage: 800 mg, TID
     Route: 048
     Dates: start: 20090309
  12. DARVOCET [Concomitant]
     Indication: PAIN
     Dosage: 650 mg, UNK
     Dates: start: 200903, end: 200904
  13. ACETAMINOPHEN W/PROPOXYPHENE [Concomitant]
     Dosage: UNK
     Route: 048
     Dates: start: 20090309
  14. FLEXERIL [Concomitant]
  15. DILAUDID [Concomitant]
     Indication: PAIN
     Dosage: UNK UNK, PRN
  16. NORVASC [Concomitant]
  17. ATIVAN [Concomitant]

REACTIONS (9)
  - Pulmonary embolism [Recovered/Resolved]
  - Injury [None]
  - Pain [None]
  - Anhedonia [None]
  - Psychological trauma [None]
  - Anxiety [None]
  - Fear [None]
  - Tachycardia [Recovered/Resolved]
  - Back pain [Recovered/Resolved]
